FAERS Safety Report 7144902-4 (Version None)
Quarter: 2010Q4

REPORT INFORMATION
  Report Type: 
  Country: None (occurrence: None)
  Receive Date: 20101122
  Receipt Date: 20101110
  Transmission Date: 20110411
  Serious: Yes (Other)
  Sender: FDA-Public Use
  Company Number: 2010SP059779

PATIENT
  Age: 68 Year
  Sex: Male

DRUGS (2)
  1. INTRON A [Suspect]
     Indication: RENAL CANCER METASTATIC
     Dosage: 6 MIU; TIW; IM
     Route: 030
     Dates: start: 20050324, end: 20080101
  2. NEXAVAR [Suspect]
     Indication: RENAL CANCER METASTATIC
     Dosage: 800 MG
     Dates: start: 20080522, end: 20080701

REACTIONS (4)
  - CONDITION AGGRAVATED [None]
  - METASTASES TO LUNG [None]
  - PALMAR-PLANTAR ERYTHRODYSAESTHESIA SYNDROME [None]
  - PLATELET COUNT DECREASED [None]
